FAERS Safety Report 8954512 (Version 1)
Quarter: 2012Q4

REPORT INFORMATION
  Report Type: 
  Country: DE (occurrence: DE)
  Receive Date: 20121207
  Receipt Date: 20121207
  Transmission Date: 20130627
  Serious: Yes (Other)
  Sender: FDA-Public Use
  Company Number: DE-MYLANLABS-2012S1024829

PATIENT
  Age: 0 Year
  Sex: Male

DRUGS (4)
  1. AZATHIOPRINE [Suspect]
     Dosage: 150 [mg/d ]
     Route: 064
     Dates: start: 20120110, end: 20120610
  2. PENTASA [Concomitant]
     Route: 064
     Dates: start: 20120110, end: 20120610
  3. CEFUROXIM /00454602/ [Concomitant]
     Route: 064
  4. INDOMETACIN [Concomitant]
     Route: 064

REACTIONS (3)
  - Exposure during pregnancy [Recovered/Resolved]
  - Premature baby [Fatal]
  - Death [Fatal]
